FAERS Safety Report 25999469 (Version 1)
Quarter: 2025Q4

REPORT INFORMATION
  Report Type: Spontaneous
  Country: CA (occurrence: CA)
  Receive Date: 20251105
  Receipt Date: 20251105
  Transmission Date: 20260117
  Serious: Yes (Other)
  Sender: TEVA
  Company Number: CA-TEVA-VS-3388613

PATIENT
  Age: 46 Year
  Sex: Female

DRUGS (1)
  1. NITROFURANTOIN [Suspect]
     Active Substance: NITROFURANTOIN
     Indication: Urinary tract infection
     Dosage: DOSE FORM: NOT SPECIFIED
     Route: 048

REACTIONS (4)
  - Urticaria [Unknown]
  - Neuralgia [Unknown]
  - Paraesthesia [Unknown]
  - Burning sensation [Unknown]
